FAERS Safety Report 16634792 (Version 1)
Quarter: 2019Q3

REPORT INFORMATION
  Report Type: Spontaneous
  Country: US (occurrence: US)
  Receive Date: 20190726
  Receipt Date: 20190726
  Transmission Date: 20191004
  Serious: Yes (Other)
  Sender: FDA-Public Use
  Company Number: US-INFO-000818

PATIENT
  Age: 81 Year
  Sex: Female
  Weight: 87.09 kg

DRUGS (6)
  1. NIFEDICAL XL [Concomitant]
     Active Substance: NIFEDIPINE
     Route: 048
  2. POTASSIUM CHLORIDE. [Concomitant]
     Active Substance: POTASSIUM CHLORIDE
     Dosage: AS DIRECTED
     Route: 048
  3. ZOLEDRONIC ACID INJECTION [Suspect]
     Active Substance: ZOLEDRONIC ACID
     Indication: OSTEOPOROSIS
     Dosage: AS DIRECTED
     Route: 041
     Dates: start: 20190506, end: 20190506
  4. METOPROLOL. [Concomitant]
     Active Substance: METOPROLOL
     Dosage: AS DIRECTED
     Route: 048
  5. TEMAZEPAM. [Concomitant]
     Active Substance: TEMAZEPAM
     Dosage: AS DIRECTED
     Route: 048
  6. SIMVASTATIN. [Concomitant]
     Active Substance: SIMVASTATIN
     Dosage: AS DIRECTED
     Route: 048

REACTIONS (5)
  - Off label use [Recovered/Resolved]
  - Myalgia [Recovered/Resolved]
  - Palpitations [Recovered/Resolved]
  - Muscle spasms [Recovered/Resolved]
  - Dizziness [Recovered/Resolved]
